FAERS Safety Report 6330692-1 (Version None)
Quarter: 2009Q3

REPORT INFORMATION
  Report Type: 
  Country: None (occurrence: None)
  Receive Date: 20090827
  Receipt Date: 20090818
  Transmission Date: 20100115
  Serious: Yes (Hospitalization)
  Sender: FDA-Public Use
  Company Number: DE-BAYER-200927956GPV

PATIENT
  Age: 65 Year
  Sex: Male

DRUGS (10)
  1. AVELOX [Suspect]
     Indication: CHOLECYSTITIS ACUTE
     Dosage: TOTAL DAILY DOSE: 400 MG
     Route: 042
     Dates: start: 20090512, end: 20090501
  2. AVELOX [Suspect]
     Dosage: TOTAL DAILY DOSE: 400 MG
     Route: 048
     Dates: start: 20090101, end: 20090518
  3. NOVALGIN [Concomitant]
  4. METOPROLOL SUCCINATE [Concomitant]
  5. ASPIRIN [Concomitant]
  6. SORTIS [Concomitant]
  7. PANTOZOL [Concomitant]
  8. MG [Concomitant]
  9. NOVALGIN [Concomitant]
  10. BUSCOPAN [Concomitant]

REACTIONS (1)
  - ABDOMINAL PAIN [None]
